FAERS Safety Report 12509689 (Version 1)
Quarter: 2016Q2

REPORT INFORMATION
  Report Type: Spontaneous
  Country: GB (occurrence: GB)
  Receive Date: 20160629
  Receipt Date: 20160629
  Transmission Date: 20160815
  Serious: Yes (Other)
  Sender: FDA-Public Use
  Company Number: GB-WATSON-2016-13105

PATIENT
  Age: 69 Year
  Sex: Female
  Weight: 50.8 kg

DRUGS (2)
  1. NAPROXEN (UNKNOWN) [Suspect]
     Active Substance: NAPROXEN
     Indication: INFLAMMATION
     Dosage: 250 MG, BID
     Route: 065
     Dates: start: 20160426, end: 20160426
  2. LORATADINE. [Concomitant]
     Active Substance: LORATADINE
     Indication: RHINITIS
     Dosage: 10 MG, DAILY
     Route: 065

REACTIONS (3)
  - Rash erythematous [Recovering/Resolving]
  - Malaise [Recovered/Resolved]
  - Skin burning sensation [Recovering/Resolving]

NARRATIVE: CASE EVENT DATE: 20160426
